FAERS Safety Report 10382489 (Version 2)
Quarter: 2014Q3

REPORT INFORMATION
  Report Type: Spontaneous
  Country: JP (occurrence: JP)
  Receive Date: 20140813
  Receipt Date: 20140825
  Transmission Date: 20150326
  Serious: Yes (Other)
  Sender: FDA-Public Use
  Company Number: JP-PFIZER INC-2014223157

PATIENT
  Age: 48 Year
  Sex: Female

DRUGS (1)
  1. ZITHROMAC [Suspect]
     Active Substance: AZITHROMYCIN DIHYDRATE
     Dosage: 500 MG, DAILY
     Route: 048
     Dates: start: 201311, end: 201311

REACTIONS (1)
  - Drug eruption [Unknown]
